FAERS Safety Report 7045587-8 (Version None)
Quarter: 2010Q4

REPORT INFORMATION
  Report Type: 
  Country: None (occurrence: None)
  Receive Date: 20101014
  Receipt Date: 20101005
  Transmission Date: 20110411
  Serious: Yes (Hospitalization)
  Sender: FDA-Public Use
  Company Number: DE-ROCHE-731443

PATIENT
  Sex: Female
  Weight: 80 kg

DRUGS (9)
  1. BEVACIZUMAB [Suspect]
     Indication: BREAST CANCER
     Dosage: ROUTE: 7 AND DOSAGE FORM: I.V. LAST DOSE PRIOR TO SAE: 30 AUGUST 2010. TEMPORARILY INTERUPTED.
     Route: 042
     Dates: start: 20100426, end: 20100921
  2. EPIRUBICIN [Suspect]
     Indication: BREAST CANCER
     Dosage: ROUTE: 4 DOSAGE FORM: I.V. LAST DOSE PRIOR TO SAE: 28 JUNE 2010.
     Route: 050
     Dates: start: 20100426
  3. DOCETAXEL [Suspect]
     Indication: BREAST CANCER
     Dosage: ROUTE: 3 DOSAGE FORM: I.V. LAST DOSE PRIOR TO SAE 30 AUGUST 2010. TEMPORARILY INTERRUPTED.
     Route: 042
     Dates: start: 20100719, end: 20100921
  4. DOCETAXEL [Suspect]
     Dosage: DOSE REDUCED ON 21 SEPT 2010.
     Route: 042
     Dates: start: 20100921
  5. CYCLOPHOSPHAMIDE [Suspect]
     Indication: BREAST CANCER
     Dosage: ROUTE: 4 DOSAGE FORM: I.V. LAST DOSE PRIOR TO SAE: 28 JUNE 2010.
     Route: 042
     Dates: start: 20100426
  6. L-THYROXIN 75 [Concomitant]
     Dosage: TOTAL DAILY DOSE: 1 1/2-0-0.
  7. SOTALOL [Concomitant]
     Dosage: TOTAL DAILY DOSE: 1/4-0-1/4. DRUG NAME: SOTANOL. DOSE 160.
  8. ASPIRIN [Concomitant]
  9. DOXEPIN HCL [Concomitant]
     Dosage: DOSE: 25.

REACTIONS (5)
  - DYSPNOEA [None]
  - GENERAL PHYSICAL HEALTH DETERIORATION [None]
  - NAUSEA [None]
  - VOMITING [None]
  - WEIGHT DECREASED [None]
